FAERS Safety Report 12820672 (Version 1)
Quarter: 2016Q4

REPORT INFORMATION
  Report Type: Spontaneous
  Country: DK (occurrence: DK)
  Receive Date: 20161006
  Receipt Date: 20161006
  Transmission Date: 20170207
  Serious: Yes (Other)
  Sender: FDA-Public Use
  Company Number: DK-JNJFOC-20160927505

PATIENT
  Age: 43 Year
  Sex: Female

DRUGS (4)
  1. METHOTREXATE. [Concomitant]
     Active Substance: METHOTREXATE
     Indication: SPONDYLOARTHROPATHY
     Route: 065
     Dates: start: 20031013
  2. REMICADE [Suspect]
     Active Substance: INFLIXIMAB
     Indication: SPONDYLOARTHROPATHY
     Route: 058
     Dates: start: 20031013, end: 2008
  3. HUMIRA [Suspect]
     Active Substance: ADALIMUMAB
     Indication: SPONDYLOARTHROPATHY
     Dosage: 40 UNITS UNSPECIFIED
     Route: 065
     Dates: start: 2008, end: 20150917
  4. ENTOCORT [Concomitant]
     Active Substance: BUDESONIDE
     Indication: CROHN^S DISEASE
     Route: 065
     Dates: start: 200212

REACTIONS (6)
  - Biliary cirrhosis primary [Unknown]
  - Blood alkaline phosphatase increased [Unknown]
  - Cholangitis sclerosing [Unknown]
  - Abdominal pain [Unknown]
  - Fatigue [Unknown]
  - Alanine aminotransferase increased [Unknown]

NARRATIVE: CASE EVENT DATE: 20150223
